FAERS Safety Report 4679251-7 (Version None)
Quarter: 2005Q2

REPORT INFORMATION
  Report Type: 
  Country: None (occurrence: None)
  Receive Date: 20050531
  Receipt Date: 20050531
  Transmission Date: 20051028
  Serious: Yes (Life-Threatening)
  Sender: FDA-Public Use
  Company Number: None

PATIENT
  Age: 86 Year
  Sex: Male

DRUGS (6)
  1. TEQUIN [Suspect]
     Indication: RESPIRATORY TRACT INFECTION
     Dosage: 400 MG DAILY ORAL
     Route: 048
     Dates: start: 20050408, end: 20050409
  2. AVANDIA [Concomitant]
  3. SINGULAIR [Concomitant]
  4. ALLEGRA [Concomitant]
  5. CHLORPHENIRAMINE MALEATE [Concomitant]
  6. ZOCOR [Concomitant]

REACTIONS (2)
  - BLOOD GLUCOSE DECREASED [None]
  - CONVULSION [None]
